FAERS Safety Report 7570455-2 (Version None)
Quarter: 2011Q2

REPORT INFORMATION
  Report Type: 
  Country: None (occurrence: None)
  Receive Date: 20110624
  Receipt Date: 20110307
  Transmission Date: 20111010
  Serious: No
  Sender: FDA-Public Use
  Company Number: US-ALLERGAN-1103191US

PATIENT
  Age: 64 Year
  Sex: Female

DRUGS (2)
  1. LATISSE [Suspect]
     Indication: GROWTH OF EYELASHES
     Dosage: 1 GTT, UNK
     Route: 061
     Dates: start: 20100901, end: 20110301
  2. REFRESH OTC ALLERGY DROPS [Concomitant]

REACTIONS (7)
  - CONJUNCTIVITIS [None]
  - VISION BLURRED [None]
  - WRONG TECHNIQUE IN DRUG USAGE PROCESS [None]
  - OCULAR HYPERAEMIA [None]
  - DRY EYE [None]
  - LACRIMATION INCREASED [None]
  - EYE PRURITUS [None]
